FAERS Safety Report 6280374-X (Version None)
Quarter: 2009Q3

REPORT INFORMATION
  Report Type: 
  Country: None (occurrence: None)
  Receive Date: 20090724
  Receipt Date: 20090715
  Transmission Date: 20100115
  Serious: Yes (Hospitalization)
  Sender: FDA-Public Use
  Company Number: DE-RANBAXY-2009RR-25675

PATIENT
  Age: 69 Year
  Sex: Male
  Weight: 84 kg

DRUGS (9)
  1. PARACETAMOL [Suspect]
     Indication: PROCEDURAL PAIN
     Dosage: 500 MG, TID
     Route: 048
     Dates: start: 20090226, end: 20090227
  2. VOLTAREN [Suspect]
     Indication: PROCEDURAL PAIN
     Dosage: UNK
     Route: 048
     Dates: start: 20090225, end: 20090227
  3. BERLOSIN [Concomitant]
     Indication: PROCEDURAL PAIN
     Dosage: UNK
     Route: 048
     Dates: start: 20090226, end: 20090227
  4. CEFUROXIME [Concomitant]
     Indication: INFECTION PROPHYLAXIS
     Dosage: UNK
     Route: 041
     Dates: start: 20090224, end: 20090224
  5. FLOTRIN [Concomitant]
     Indication: BENIGN PROSTATIC HYPERPLASIA
     Dosage: UNK
     Route: 048
     Dates: start: 20050101
  6. IBUPROFEN [Concomitant]
     Indication: OSTEOARTHRITIS
     Dosage: UNK
     Route: 048
     Dates: start: 20070101, end: 20090220
  7. NORSPAN [Concomitant]
     Indication: PROCEDURAL PAIN
     Dosage: UNK
     Route: 062
     Dates: start: 20090224, end: 20090302
  8. OMEP [Concomitant]
     Indication: PROPHYLAXIS AGAINST GASTROINTESTINAL ULCER
     Dosage: UNK
     Route: 048
     Dates: start: 20090225
  9. RAMIPRIL [Concomitant]
     Indication: HYPERTENSION
     Dosage: UNK
     Route: 048
     Dates: start: 20000101

REACTIONS (1)
  - PANCREATITIS [None]
